FAERS Safety Report 25999453 (Version 1)
Quarter: 2025Q4

REPORT INFORMATION
  Report Type: Spontaneous
  Country: AU (occurrence: AU)
  Receive Date: 20251105
  Receipt Date: 20251105
  Transmission Date: 20260117
  Serious: Yes (Hospitalization, Other)
  Sender: MYLAN
  Company Number: AU-MYLANLABS-2025M1093339

PATIENT
  Age: 8 Decade
  Sex: Male

DRUGS (2)
  1. PACLITAXEL [Suspect]
     Active Substance: PACLITAXEL
     Indication: Adenocarcinoma pancreas
     Dosage: UNK, PALLIATIVE CHEMOTHERAPY, REQUIRED DOSE REDUCTIONS AND INTERRUPTIONS AND PALLIATIVE CHEMOTHERAPY WAS STOPPED
  2. GEMCITABINE [Suspect]
     Active Substance: GEMCITABINE
     Indication: Adenocarcinoma pancreas
     Dosage: UNK, PALLIATIVE CHEMOTHERAPY, REQUIRED DOSE REDUCTIONS AND INTERRUPTIONS AND PALLIATIVE CHEMOTHERAPY WAS STOPPED

REACTIONS (4)
  - Large intestine infection [Unknown]
  - Pneumocystis jirovecii pneumonia [Unknown]
  - Drug ineffective [Unknown]
  - Disease progression [Unknown]
